FAERS Safety Report 10587475 (Version 2)
Quarter: 2015Q1

REPORT INFORMATION
  Report Type: Spontaneous
  Country: US (occurrence: US)
  Receive Date: 20141117
  Receipt Date: 20150119
  Transmission Date: 20150720
  Serious: No
  Sender: FDA-Public Use
  Company Number: US-PFIZER INC-2014315464

PATIENT
  Age: 90 Year
  Sex: Female
  Weight: 57 kg

DRUGS (1)
  1. XANAX [Suspect]
     Active Substance: ALPRAZOLAM
     Indication: PARKINSON^S DISEASE
     Dosage: UNK(0.25MG 1/2 TABLET), 2X/DAY
     Route: 048

REACTIONS (2)
  - Urine odour abnormal [Not Recovered/Not Resolved]
  - Product use issue [Unknown]

NARRATIVE: CASE EVENT DATE: 201410
